FAERS Safety Report 5963563-0 (Version None)
Quarter: 2008Q4

REPORT INFORMATION
  Report Type: 
  Country: None (occurrence: None)
  Receive Date: 20081124
  Receipt Date: 20081118
  Transmission Date: 20090506
  Serious: Yes (Hospitalization)
  Sender: FDA-Public Use
  Company Number: JP-EISAI MEDICAL RESEARCH-E2090-00588-SPO-JP

PATIENT
  Sex: Female

DRUGS (4)
  1. EXCEGRAN [Suspect]
     Indication: EPILEPSY
     Route: 048
     Dates: start: 20081010, end: 20081107
  2. EXCEGRAN [Suspect]
     Indication: PETIT MAL EPILEPSY
  3. DEPAKENE [Concomitant]
     Indication: EPILEPSY
     Route: 048
     Dates: start: 19970523, end: 20081010
  4. DEPAKENE [Concomitant]
     Route: 048
     Dates: start: 20081107

REACTIONS (8)
  - DECREASED APPETITE [None]
  - ERYTHEMA [None]
  - FATIGUE [None]
  - HEPATIC FUNCTION ABNORMAL [None]
  - MOUTH ULCERATION [None]
  - OEDEMA PERIPHERAL [None]
  - OROPHARYNGEAL PAIN [None]
  - RASH [None]
